FAERS Safety Report 9800450 (Version 1)
Quarter: 2014Q1

REPORT INFORMATION
  Report Type: Report from Study
  Country: TH (occurrence: TH)
  Receive Date: 20140107
  Receipt Date: 20140107
  Transmission Date: 20141002
  Serious: Yes (Other)
  Sender: FDA-Public Use
  Company Number: TH-ROCHE-1329006

PATIENT
  Sex: 0

DRUGS (3)
  1. ENFUVIRTIDE [Suspect]
     Indication: HIV INFECTION
     Dosage: ON DAYS 1 TO 7, EXCEPT FOR DAYS 3 AND 7
     Route: 058
  2. SAQUINAVIR [Suspect]
     Indication: HIV INFECTION
     Dosage: FROM DAYS 4 TO 7
     Route: 048
  3. RITONAVIR [Suspect]
     Indication: HIV INFECTION
     Dosage: FROM DAYS 4 TO 7
     Route: 048

REACTIONS (1)
  - Injection site erythema [Unknown]
